FAERS Safety Report 10889301 (Version 1)
Quarter: 2015Q1

REPORT INFORMATION
  Report Type: Spontaneous
  Country: GB (occurrence: GB)
  Receive Date: 20150305
  Receipt Date: 20150305
  Transmission Date: 20150721
  Serious: Yes (Other)
  Sender: FDA-Public Use
  Company Number: GB-MYLANLABS-2015M1006749

PATIENT

DRUGS (1)
  1. VENLAFAXINE [Suspect]
     Active Substance: VENLAFAXINE HYDROCHLORIDE
     Dosage: 100MG X2
     Route: 065

REACTIONS (6)
  - Divorced [Unknown]
  - Akathisia [Unknown]
  - Impulse-control disorder [Unknown]
  - Alcohol abuse [Unknown]
  - Depression [Unknown]
  - Economic problem [Unknown]
